FAERS Safety Report 10179894 (Version 2)
Quarter: 2014Q2

REPORT INFORMATION
  Report Type: Spontaneous
  Country: US (occurrence: US)
  Receive Date: 20140519
  Receipt Date: 20140606
  Transmission Date: 20141212
  Serious: Yes (Death, Other)
  Sender: FDA-Public Use
  Company Number: US-PFIZER INC-2014135839

PATIENT
  Age: 47 Year
  Sex: Male

DRUGS (1)
  1. CELEBREX [Suspect]
     Dosage: UNK

REACTIONS (9)
  - Pneumonia [Fatal]
  - Cardiac disorder [Fatal]
  - Arteriovenous malformation [Fatal]
  - Road traffic accident [Unknown]
  - Cervical vertebral fracture [Unknown]
  - Back disorder [Unknown]
  - Nasopharyngitis [Unknown]
  - Pain [Unknown]
  - Migraine [Unknown]
